FAERS Safety Report 11483067 (Version 2)
Quarter: 2015Q3

REPORT INFORMATION
  Report Type: Spontaneous
  Country: US (occurrence: US)
  Receive Date: 20150903
  Receipt Date: 20150903
  Transmission Date: 20151125
  Serious: No
  Sender: FDA-Public Use
  Company Number: US-ELI_LILLY_AND_COMPANY-US201205007369

PATIENT
  Sex: Female
  Weight: 89.34 kg

DRUGS (8)
  1. CYMBALTA [Suspect]
     Active Substance: DULOXETINE HYDROCHLORIDE
     Indication: PAIN
     Dosage: UNK, UNKNOWN
     Route: 048
  2. REMICADE [Concomitant]
     Active Substance: INFLIXIMAB
     Dosage: 1 DF, OTHER
  3. LYRICA [Concomitant]
     Active Substance: PREGABALIN
     Dosage: UNK, UNKNOWN
  4. HUMALOG [Suspect]
     Active Substance: INSULIN LISPRO
     Dosage: 1 DF, OTHER
  5. REMICADE [Concomitant]
     Active Substance: INFLIXIMAB
     Indication: RHEUMATOID ARTHRITIS
     Dosage: 1 DF, OTHER
     Dates: start: 201010
  6. PREDNISONE. [Concomitant]
     Active Substance: PREDNISONE
     Indication: ARTHRITIS
     Dosage: 1 DF, OTHER
  7. LEVONOR [Concomitant]
     Indication: DIABETES MELLITUS
     Dosage: UNK, UNKNOWN
  8. METFORMIN [Concomitant]
     Active Substance: METFORMIN HYDROCHLORIDE
     Indication: DIABETES MELLITUS
     Dosage: 1 DF, BID

REACTIONS (8)
  - Pain in extremity [Unknown]
  - Blood glucose increased [Recovering/Resolving]
  - Weight increased [Recovering/Resolving]
  - Musculoskeletal pain [Unknown]
  - Oedema peripheral [Unknown]
  - Drug ineffective [Recovered/Resolved]
  - Fatigue [Not Recovered/Not Resolved]
  - Swelling face [Unknown]
